FAERS Safety Report 19088713 (Version 2)
Quarter: 2021Q2

REPORT INFORMATION
  Report Type: Report from Study
  Country: None (occurrence: CO)
  Receive Date: 20210403
  Receipt Date: 20210425
  Transmission Date: 20210717
  Serious: Yes (Death, Hospitalization, Other)
  Sender: FDA-Public Use
  Company Number: CO-ABBVIE-21K-036-3840027-00

PATIENT
  Age: 71 Year
  Sex: Male
  Weight: 87 kg

DRUGS (2)
  1. HUMIRA [Suspect]
     Active Substance: ADALIMUMAB
     Indication: PSORIASIS
     Route: 058
     Dates: start: 20140717
  2. HUMIRA [Suspect]
     Active Substance: ADALIMUMAB
     Indication: PSORIASIS
     Route: 058
     Dates: end: 20210304

REACTIONS (6)
  - Liver disorder [Not Recovered/Not Resolved]
  - Discomfort [Not Recovered/Not Resolved]
  - Seizure [Not Recovered/Not Resolved]
  - Lung disorder [Not Recovered/Not Resolved]
  - Renal disorder [Fatal]
  - COVID-19 [Fatal]

NARRATIVE: CASE EVENT DATE: 202103
